FAERS Safety Report 17257594 (Version 3)
Quarter: 2020Q1

REPORT INFORMATION
  Report Type: Spontaneous
  Country: US (occurrence: US)
  Receive Date: 20200110
  Receipt Date: 20200226
  Transmission Date: 20200409
  Serious: Yes (Other)
  Sender: FDA-Public Use
  Company Number: US-PFIZER INC-2020011779

PATIENT
  Age: 19 Year
  Sex: Male

DRUGS (2)
  1. XELJANZ [Suspect]
     Active Substance: TOFACITINIB CITRATE
     Dosage: 10 MG, DAILY (10MG ONE TABLET DAILY FOR THREE DAYS)
     Route: 048
  2. XELJANZ [Suspect]
     Active Substance: TOFACITINIB CITRATE
     Indication: COLITIS ULCERATIVE
     Dosage: 10 MG, 2X/DAY
     Route: 048
     Dates: start: 201911

REACTIONS (6)
  - Product dose omission [Unknown]
  - Intentional product use issue [Unknown]
  - Abnormal faeces [Unknown]
  - Sleep disorder [Unknown]
  - Haematochezia [Unknown]
  - Condition aggravated [Unknown]
